FAERS Safety Report 6583195-3 (Version None)
Quarter: 2010Q1

REPORT INFORMATION
  Report Type: 
  Country: None (occurrence: None)
  Receive Date: 20100216
  Receipt Date: 20100210
  Transmission Date: 20100710
  Serious: Yes (Death)
  Sender: FDA-Public Use
  Company Number: US-ROCHE-685255

PATIENT
  Sex: Male
  Weight: 45.5 kg

DRUGS (12)
  1. BEVACIZUMAB [Suspect]
     Indication: METASTATIC CARCINOID TUMOUR
     Route: 042
     Dates: start: 20090916, end: 20100104
  2. LEUCOVORIN CALCIUM [Suspect]
     Indication: METASTATIC CARCINOID TUMOUR
     Dosage: DOSE: 200MG/M
     Route: 042
     Dates: start: 20090916, end: 20100104
  3. ELOXATIN [Suspect]
     Indication: METASTATIC CARCINOID TUMOUR
     Route: 042
     Dates: start: 20090916, end: 20100104
  4. 5-FU [Suspect]
     Indication: METASTATIC CARCINOID TUMOUR
     Route: 042
     Dates: start: 20090916, end: 20100104
  5. ENOXAPARIN SODIUM [Concomitant]
  6. SANDOSTATIN LAR [Concomitant]
     Dosage: DRUG NAME: SANDOSTATIN LAR DEPO
  7. PANCRELIPASE [Concomitant]
  8. TRAVATAN [Concomitant]
     Dosage: FREQUENCY: DAILY
     Route: 047
  9. POTASSIUM CHLORIDE [Concomitant]
  10. IMODIUM [Concomitant]
     Dosage: FREQUENCY: PRN
  11. TYLENOL-500 [Concomitant]
  12. FER-IN-SOL [Concomitant]

REACTIONS (5)
  - DEATH [None]
  - DISEASE PROGRESSION [None]
  - FATIGUE [None]
  - NEUROENDOCRINE TUMOUR [None]
  - WEIGHT DECREASED [None]
